FAERS Safety Report 9165112 (Version 2)
Quarter: 2013Q2

REPORT INFORMATION
  Report Type: Spontaneous
  Country: US (occurrence: US)
  Receive Date: 20130315
  Receipt Date: 20130404
  Transmission Date: 20140414
  Serious: No
  Sender: FDA-Public Use
  Company Number: US-VERTEX PHARMACEUTICALS INC.-2013-003594

PATIENT
  Age: 54 Year
  Sex: Female
  Weight: 82 kg

DRUGS (5)
  1. INCIVEK [Suspect]
     Indication: HEPATITIS C
     Dosage: 750 MG, TID
     Route: 048
     Dates: start: 20130204, end: 20130306
  2. RIBAVIRIN [Suspect]
     Indication: HEPATITIS C
     Dosage: 600 MG, BID
     Route: 048
     Dates: start: 20130204
  3. PEGASYS [Suspect]
     Indication: HEPATITIS C
     Dosage: 180 ?G, QW
     Route: 058
     Dates: start: 20130204
  4. PERMETHRIN [Concomitant]
     Dosage: UNK
     Dates: start: 20130305
  5. VISTARIL [Concomitant]

REACTIONS (4)
  - Acarodermatitis [Unknown]
  - Pain [Not Recovered/Not Resolved]
  - Drug eruption [Recovered/Resolved]
  - Pruritus generalised [Recovered/Resolved]
